FAERS Safety Report 8197974-2 (Version None)
Quarter: 2012Q1

REPORT INFORMATION
  Report Type: 
  Country: None (occurrence: None)
  Receive Date: 20120309
  Receipt Date: 20120305
  Transmission Date: 20120608
  Serious: Yes (Other)
  Sender: FDA-Public Use
  Company Number: DE-BAYER-2012-019695

PATIENT
  Age: 53 Year
  Sex: Female
  Weight: 75 kg

DRUGS (2)
  1. BETASERON [Suspect]
     Indication: MULTIPLE SCLEROSIS
     Dosage: QOD
     Route: 058
     Dates: start: 19960401, end: 20111001
  2. ACETAMINOPHEN [Concomitant]
     Dosage: UNK

REACTIONS (3)
  - CRYPTOGENIC CIRRHOSIS [None]
  - ASCITES [None]
  - LIVER FUNCTION TEST ABNORMAL [None]
